FAERS Safety Report 16946116 (Version 2)
Quarter: 2019Q4

REPORT INFORMATION
  Report Type: Spontaneous
  Country: US (occurrence: US)
  Receive Date: 20191022
  Receipt Date: 20191105
  Transmission Date: 20200122
  Serious: No
  Sender: FDA-Public Use
  Company Number: US-PFIZER INC-2019447887

PATIENT
  Age: 66 Year
  Sex: Male

DRUGS (1)
  1. TESTOSTERONE CIPIONATE [Suspect]
     Active Substance: TESTOSTERONE
     Dosage: UNK
     Route: 030
     Dates: start: 201910

REACTIONS (5)
  - Furuncle [Not Recovered/Not Resolved]
  - Skin disorder [Unknown]
  - Poor quality product administered [Unknown]
  - Product physical issue [Unknown]
  - Blister [Not Recovered/Not Resolved]

NARRATIVE: CASE EVENT DATE: 201910
